FAERS Safety Report 11823906 (Version 4)
Quarter: 2016Q1

REPORT INFORMATION
  Report Type: Report from Study
  Country: US (occurrence: US)
  Receive Date: 20151210
  Receipt Date: 20160104
  Transmission Date: 20160525
  Serious: Yes (Hospitalization, Other)
  Sender: FDA-Public Use
  Company Number: US-GILEAD-2015-0185731

PATIENT
  Age: 73 Year
  Sex: Female

DRUGS (6)
  1. AMBRISENTAN [Suspect]
     Active Substance: AMBRISENTAN
     Indication: RIGHT VENTRICULAR FAILURE
  2. REMODULIN [Suspect]
     Active Substance: TREPROSTINIL
     Indication: PRODUCT USED FOR UNKNOWN INDICATION
     Dosage: UNK
     Route: 065
  3. REVATIO [Suspect]
     Active Substance: SILDENAFIL CITRATE
     Indication: PRODUCT USED FOR UNKNOWN INDICATION
     Route: 065
  4. AMBRISENTAN [Suspect]
     Active Substance: AMBRISENTAN
     Indication: CHRONIC OBSTRUCTIVE PULMONARY DISEASE
  5. COUMADIN [Suspect]
     Active Substance: WARFARIN SODIUM
     Indication: PRODUCT USED FOR UNKNOWN INDICATION
     Route: 065
  6. AMBRISENTAN [Suspect]
     Active Substance: AMBRISENTAN
     Indication: PULMONARY HYPERTENSION
     Dosage: 10 MG, QD
     Route: 065
     Dates: start: 20141110

REACTIONS (3)
  - Right ventricular failure [Unknown]
  - Oxygen saturation decreased [Unknown]
  - Cor pulmonale [Unknown]

NARRATIVE: CASE EVENT DATE: 201512
